FAERS Safety Report 8168798-7 (Version None)
Quarter: 2012Q1

REPORT INFORMATION
  Report Type: 
  Country: None (occurrence: None)
  Receive Date: 20120227
  Receipt Date: 20120220
  Transmission Date: 20120608
  Serious: Yes (Other)
  Sender: FDA-Public Use
  Company Number: KR-PFIZER INC-2012034973

PATIENT
  Sex: Male

DRUGS (2)
  1. NEURONTIN [Suspect]
     Indication: LARYNGITIS
     Dosage: UNK
     Route: 048
  2. VIBRAMYCIN [Suspect]
     Dosage: UNK
     Route: 048
     Dates: start: 20111201

REACTIONS (12)
  - EYE PAIN [None]
  - MUSCLE TWITCHING [None]
  - FEAR [None]
  - SWELLING FACE [None]
  - ANXIETY [None]
  - CONVULSION [None]
  - IMPAIRED WORK ABILITY [None]
  - FEELING ABNORMAL [None]
  - HICCUPS [None]
  - DIZZINESS [None]
  - DEPRESSION [None]
  - ACTIVITIES OF DAILY LIVING IMPAIRED [None]
